FAERS Safety Report 5844002-7 (Version None)
Quarter: 2008Q3

REPORT INFORMATION
  Report Type: 
  Country: None (occurrence: None)
  Receive Date: 20080813
  Receipt Date: 20080807
  Transmission Date: 20090109
  Serious: Yes (Life-Threatening)
  Sender: FDA-Public Use
  Company Number: GB-TEVA-169985ISR

PATIENT
  Age: 72 Year
  Sex: Male
  Weight: 81.6 kg

DRUGS (1)
  1. VERAPAMIL [Suspect]
     Indication: ATRIAL FIBRILLATION
     Route: 048
     Dates: start: 20080328, end: 20080331

REACTIONS (4)
  - ANGIOEDEMA [None]
  - SWELLING FACE [None]
  - TACHYCARDIA [None]
  - WHEEZING [None]
